FAERS Safety Report 9238174 (Version 1)
Quarter: 2013Q1

REPORT INFORMATION
  Report Type: Spontaneous
  Country: US (occurrence: None)
  Receive Date: 20121107
  Receipt Date: 20121107
  Transmission Date: 20140127
  Serious: No
  Sender: FDA-Public Use
  Company Number: 2012HGS-003782

PATIENT
  Age: 39 Year
  Sex: Female

DRUGS (10)
  1. BENLYSTA [Suspect]
     Indication: SYSTEMIC LUPUS ERYTHEMATOSUS
     Route: 041
     Dates: start: 20120628
  2. CELLCEPT (MYCOPHENOLATE MOFETIL) (MYCOPHENOLATE MOFETIL) [Concomitant]
  3. VITAMIN D (ERGOCALCIFEROL) [Concomitant]
  4. CALCIUM [Concomitant]
  5. OMEGA 3 OIL (FISH OIL) [Concomitant]
  6. MULTIVITAMIN (MULTIVITAMINS) (ERGOCALCIFEROL, ASCORBIC ACID, FOLIC ACID, THIAMINE HYDROCHLORIDE, RETINOL, RIBOFLAVIN, NICOTINAMIDE, PANTHENOL) [Concomitant]
  7. VITAMIN B12 (CYANOCOBALAMIN) [Concomitant]
  8. FLAGYL (METRONIDAZOLE) [Concomitant]
  9. MACROBID (NITROFURANTOIN) [Concomitant]
  10. DEPOMEDROL (METHYLPREDNISOLONE ACETATE) (METHYLPREDNISOLONE ACETATE) [Concomitant]

REACTIONS (4)
  - Infusion related reaction [None]
  - Chest discomfort [None]
  - Dyspnoea [None]
  - Dysphonia [None]
